FAERS Safety Report 19013653 (Version 2)
Quarter: 2021Q1

REPORT INFORMATION
  Report Type: Report from Study
  Country: US (occurrence: US)
  Receive Date: 20210315
  Receipt Date: 20210324
  Transmission Date: 20210420
  Serious: Yes (Hospitalization, Other)
  Sender: FDA-Public Use
  Company Number: US-GILEAD-2021-0520868

PATIENT
  Age: 47 Year
  Sex: Female

DRUGS (39)
  1. HYDROCORTISONE SODIUM SUCCINATE [Concomitant]
     Active Substance: HYDROCORTISONE SODIUM SUCCINATE
  2. AMANTADINE. [Concomitant]
     Active Substance: AMANTADINE HYDROCHLORIDE
  3. GABAPENTIN. [Concomitant]
     Active Substance: GABAPENTIN
  4. LIDOCAINE. [Concomitant]
     Active Substance: LIDOCAINE
  5. MEROPENEM. [Concomitant]
     Active Substance: MEROPENEM
  6. MICAFUNGIN. [Concomitant]
     Active Substance: MICAFUNGIN SODIUM
  7. MODAFINIL. [Concomitant]
     Active Substance: MODAFINIL
  8. PROPOFOL. [Concomitant]
     Active Substance: PROPOFOL
  9. RIVAROXABAN [Concomitant]
     Active Substance: RIVAROXABAN
  10. SODIUM CHLORIDE. [Concomitant]
     Active Substance: SODIUM CHLORIDE
  11. BLINDED INFLIXIMAB [Suspect]
     Active Substance: INFLIXIMAB
     Indication: COVID-19
     Dosage: UNK, ONCE
     Route: 042
     Dates: start: 20210209, end: 20210209
  12. CHLORDIAZEPOXIDE. [Concomitant]
     Active Substance: CHLORDIAZEPOXIDE
  13. CLONIDINE. [Concomitant]
     Active Substance: CLONIDINE
  14. HEPARIN [Concomitant]
     Active Substance: HEPARIN SODIUM
  15. IPRATROPIUM [Concomitant]
     Active Substance: IPRATROPIUM
  16. NYSTATIN. [Concomitant]
     Active Substance: NYSTATIN
  17. ESOMEPRAZOLE. [Concomitant]
     Active Substance: ESOMEPRAZOLE MAGNESIUM
  18. FENTANYL. [Concomitant]
     Active Substance: FENTANYL
  19. LABETALOL [Concomitant]
     Active Substance: LABETALOL\LABETALOL HYDROCHLORIDE
  20. MIDAZOLAM. [Concomitant]
     Active Substance: MIDAZOLAM
  21. SUMATRIPTAN. [Concomitant]
     Active Substance: SUMATRIPTAN
  22. VORICONAZOLE. [Concomitant]
     Active Substance: VORICONAZOLE
  23. PLACEBO [Suspect]
     Active Substance: UNSPECIFIED INGREDIENT
     Indication: COVID-19
     Dosage: UNK, ONCE
     Route: 042
     Dates: start: 20210209, end: 20210209
  24. ACETAZOLAMIDE. [Concomitant]
     Active Substance: ACETAZOLAMIDE
  25. ALBUMIN HUMAN [Concomitant]
     Active Substance: ALBUMIN HUMAN
  26. FUROSEMIDE. [Concomitant]
     Active Substance: FUROSEMIDE
  27. HYDROMORPHONE [Concomitant]
     Active Substance: HYDROMORPHONE
  28. NALOXONE [Concomitant]
     Active Substance: NALOXONE
  29. SALBUTAMOL SULFATE [Concomitant]
     Active Substance: ALBUTEROL SULFATE
  30. VANCOMYCIN [Concomitant]
     Active Substance: VANCOMYCIN
  31. VASOPRESSIN. [Concomitant]
     Active Substance: VASOPRESSIN
  32. NICARDIPINE [Concomitant]
     Active Substance: NICARDIPINE
  33. PHENYLEPHRINE [Concomitant]
     Active Substance: PHENYLEPHRINE HYDROCHLORIDE
  34. REMDESIVIR. [Suspect]
     Active Substance: REMDESIVIR
     Indication: COVID-19
     Dosage: UNK, QD
     Route: 042
     Dates: start: 20210209
  35. DEXMEDETOMIDINE. [Concomitant]
     Active Substance: DEXMEDETOMIDINE
  36. INSULIN [Concomitant]
     Active Substance: INSULIN NOS
  37. PIPERACILLIN AND TAZOBACTAM [Concomitant]
     Active Substance: PIPERACILLIN SODIUM\TAZOBACTAM SODIUM
  38. ROCURONIUM [Concomitant]
     Active Substance: ROCURONIUM BROMIDE
  39. AMLODIPINE [Concomitant]
     Active Substance: AMLODIPINE BESYLATE

REACTIONS (3)
  - Posterior reversible encephalopathy syndrome [Recovering/Resolving]
  - Infection [Recovering/Resolving]
  - Systemic inflammatory response syndrome [Recovered/Resolved]

NARRATIVE: CASE EVENT DATE: 20210224
